FAERS Safety Report 21911586 (Version 1)
Quarter: 2023Q1

REPORT INFORMATION
  Report Type: Spontaneous
  Country: US (occurrence: US)
  Receive Date: 20230125
  Receipt Date: 20230125
  Transmission Date: 20230417
  Serious: No
  Sender: FDA-Public Use
  Company Number: US-ALLERGAN-2213737US

PATIENT
  Sex: Female

DRUGS (41)
  1. BOTOX [Suspect]
     Active Substance: ONABOTULINUMTOXINA
     Indication: Product used for unknown indication
     Dosage: UNK UNK, SINGLE
  2. FABRAZYME [Suspect]
     Active Substance: AGALSIDASE BETA
     Indication: Fabry^s disease
     Dosage: ACTUAL: 65 MG EVERY OTHER WEEK
     Route: 042
     Dates: start: 20070323
  3. FABRAZYME [Suspect]
     Active Substance: AGALSIDASE BETA
     Dosage: ACTUAL: 65 MG EVERY OTHER WEEK
     Route: 042
     Dates: start: 20070323
  4. PANTOPRAZOLE SODIUM [Concomitant]
     Active Substance: PANTOPRAZOLE SODIUM
  5. LOSARTAN POTASSIUM [Concomitant]
     Active Substance: LOSARTAN POTASSIUM
  6. WARFARIN SODIUM [Concomitant]
     Active Substance: WARFARIN SODIUM
  7. ACETAMINOPHEN [Concomitant]
     Active Substance: ACETAMINOPHEN
  8. CODEINE [Concomitant]
     Active Substance: CODEINE
  9. HEPARIN [Concomitant]
     Active Substance: HEPARIN SODIUM
  10. METOPROLOL SUCCINATE [Concomitant]
     Active Substance: METOPROLOL SUCCINATE
  11. LIDOCAINE [Concomitant]
     Active Substance: LIDOCAINE
  12. PRILOCAINE [Concomitant]
     Active Substance: PRILOCAINE
  13. SODIUM CHLORIDE [Concomitant]
     Active Substance: SODIUM CHLORIDE
  14. STERILE WATER [Concomitant]
     Active Substance: WATER
  15. EPINEPHRINE [Concomitant]
     Active Substance: EPINEPHRINE
  16. ZOFRAN [Concomitant]
     Active Substance: ONDANSETRON HYDROCHLORIDE
  17. SHINGRIX [Concomitant]
     Active Substance: RECOMBINANT VARICELLA ZOSTER VIRUS (VZV) GLYCOPROTEIN E
  18. ISOSORBIDE MONONITRATE [Concomitant]
     Active Substance: ISOSORBIDE MONONITRATE
  19. HYDRALAZINE [Concomitant]
     Active Substance: HYDRALAZINE HYDROCHLORIDE
  20. CAPSAICIN [Concomitant]
     Active Substance: CAPSAICIN
  21. GABAPENTIN [Concomitant]
     Active Substance: GABAPENTIN
  22. NIFEDIPINE [Concomitant]
     Active Substance: NIFEDIPINE
  23. BISACODYL [Concomitant]
     Active Substance: BISACODYL
  24. ACETAMINOPHEN\ASCORBIC ACID [Concomitant]
     Active Substance: ACETAMINOPHEN\ASCORBIC ACID
  25. VITAMIN D3 [Concomitant]
     Active Substance: CHOLECALCIFEROL
  26. MIRALAX [Concomitant]
     Active Substance: POLYETHYLENE GLYCOL 3350
  27. NITROFURANTOIN [Concomitant]
     Active Substance: NITROFURANTOIN
  28. SEVELAMER CARBONATE [Concomitant]
     Active Substance: SEVELAMER CARBONATE
  29. HYDROXYZINE [Concomitant]
     Active Substance: HYDROXYZINE HYDROCHLORIDE
  30. TRIAMCINOLONE [Concomitant]
     Active Substance: TRIAMCINOLONE
  31. MECLIZINE [Concomitant]
     Active Substance: MECLIZINE HYDROCHLORIDE
  32. PROCHLORPERAZINE [Concomitant]
     Active Substance: PROCHLORPERAZINE
  33. PROGESTERONE [Concomitant]
     Active Substance: PROGESTERONE
  34. CLARITHROMYCIN [Concomitant]
     Active Substance: CLARITHROMYCIN
  35. TYLENOL COLD + SINUS [Concomitant]
  36. DULCOLAX (BISACODYL) [Concomitant]
     Active Substance: BISACODYL
  37. FLUCELVAX QUADRIVALENT 2017/2018 (INFLUENZA A VIRUS A/DARWIN/11/2021 ( [Concomitant]
     Active Substance: INFLUENZA A VIRUS A/DARWIN/11/2021 (H3N2) ANTIGEN (MDCK CELL DERIVED, PROPIOLACTONE INACTIVATED)\INF
  38. PFIZER-BIONTECH COVID-19 VACCINE [Concomitant]
     Active Substance: TOZINAMERAN
  39. AUGMENTIN [Concomitant]
     Active Substance: AMOXICILLIN\CLAVULANATE POTASSIUM
  40. PNEUMOVAX 23 [Concomitant]
     Active Substance: PNEUMOCOCCAL VACCINE, POLYVALENT 23
  41. DOCUSATE SODIUM [Concomitant]
     Active Substance: DOCUSATE SODIUM

REACTIONS (2)
  - Off label use [Unknown]
  - Nausea [Unknown]
